FAERS Safety Report 8804551 (Version 1)
Quarter: 2012Q4

REPORT INFORMATION
  Report Type: 
  Country: US (occurrence: US)
  Receive Date: 20120924
  Receipt Date: 20120924
  Transmission Date: 20130627
  Serious: Yes (Hospitalization, Other)
  Sender: FDA-Public Use
  Company Number: US-009507513-1109USA01511

PATIENT

DRUGS (6)
  1. FOSAMAX [Suspect]
     Indication: OSTEOPOROSIS
     Dosage: 10 mg, qd
     Route: 048
     Dates: start: 19980603, end: 20011031
  2. FOSAMAX [Suspect]
     Indication: OSTEOPOROSIS PROPHYLAXIS
     Dosage: 70 mg, QW
     Route: 048
     Dates: start: 20021101, end: 20081103
  3. FOSAMAX [Suspect]
     Indication: OSTEOPOROSIS
     Route: 048
     Dates: start: 1998, end: 2010
  4. FOSAMAX [Suspect]
     Indication: OSTEOPOROSIS PROPHYLAXIS
  5. FOSAMAX [Suspect]
     Indication: OSTEOPOROSIS
     Dosage: 70 mg, QW
     Route: 048
     Dates: start: 20081101, end: 20100929
  6. DARVOCET-N [Concomitant]

REACTIONS (96)
  - Femoral neck fracture [Unknown]
  - Cardiac failure congestive [Unknown]
  - Deafness unilateral [Unknown]
  - Cardiac failure congestive [Unknown]
  - Chronic obstructive pulmonary disease [Unknown]
  - Gouty arthritis [Unknown]
  - Breast cancer [Unknown]
  - Pulmonary embolism [Unknown]
  - Renal failure [Unknown]
  - Sleep apnoea syndrome [Unknown]
  - Spinal compression fracture [Recovering/Resolving]
  - Spinal compression fracture [Unknown]
  - Restless legs syndrome [Unknown]
  - Spinal compression fracture [Unknown]
  - Cardiac murmur [Unknown]
  - Asthma [Unknown]
  - Peripheral vascular disorder [Unknown]
  - Hyperlipidaemia [Unknown]
  - Rotator cuff syndrome [Unknown]
  - Tendon disorder [Unknown]
  - Neoplasm [Unknown]
  - Anaemia [Not Recovered/Not Resolved]
  - Deep vein thrombosis [Unknown]
  - Spinal osteoarthritis [Unknown]
  - Aortic stenosis [Unknown]
  - Gout [Unknown]
  - Haemorrhoids [Unknown]
  - Hernia [Unknown]
  - Lumbar vertebral fracture [Not Recovered/Not Resolved]
  - Osteoarthritis [Unknown]
  - Exostosis [Unknown]
  - Intervertebral disc degeneration [Unknown]
  - Lumbar spinal stenosis [Unknown]
  - Intervertebral disc protrusion [Unknown]
  - Nerve root compression [Unknown]
  - Facet joint syndrome [Unknown]
  - Fall [Unknown]
  - Gait disturbance [Unknown]
  - Areflexia [Unknown]
  - Kyphosis [Unknown]
  - Intervertebral disc protrusion [Unknown]
  - Stasis dermatitis [Unknown]
  - Diabetic neuropathy [Unknown]
  - Neuralgia [Unknown]
  - Bursitis [Recovering/Resolving]
  - Dupuytren^s contracture [Unknown]
  - Tendonitis [Unknown]
  - Osteoarthritis [Unknown]
  - Burns first degree [Unknown]
  - Road traffic accident [Unknown]
  - Ecchymosis [Unknown]
  - Excoriation [Unknown]
  - Blood osmolarity [Unknown]
  - Hyponatraemia [Unknown]
  - Ureteral disorder [Unknown]
  - Renal disorder [Unknown]
  - Metabolic syndrome [Unknown]
  - Coronary artery disease [Unknown]
  - Overdose [Unknown]
  - Blood glucose abnormal [Unknown]
  - Productive cough [Unknown]
  - Hypoxia [Unknown]
  - Fall [Unknown]
  - Pickwickian syndrome [Unknown]
  - Left ventricular hypertrophy [Unknown]
  - Fibrin D dimer increased [Unknown]
  - Appendix disorder [Unknown]
  - Bladder disorder [Unknown]
  - Lymphadenopathy mediastinal [Unknown]
  - Hiatus hernia [Not Recovered/Not Resolved]
  - Pleural effusion [Unknown]
  - Atelectasis [Unknown]
  - Pulmonary fibrosis [Unknown]
  - Emphysema [Unknown]
  - Chest pain [Recovered/Resolved]
  - Sinus bradycardia [Unknown]
  - Atrioventricular block first degree [Unknown]
  - Bundle branch block left [Unknown]
  - Bundle branch block right [Unknown]
  - QRS axis abnormal [Unknown]
  - Hypoglycaemia [Unknown]
  - Dermal cyst [Recovering/Resolving]
  - Diverticulum [Not Recovered/Not Resolved]
  - Arthropod bite [Unknown]
  - Chest wall abscess [Unknown]
  - Gastritis erosive [Unknown]
  - Burns second degree [Unknown]
  - Musculoskeletal discomfort [Unknown]
  - Back pain [Unknown]
  - Oedema peripheral [Unknown]
  - Oedema peripheral [Unknown]
  - Gastrooesophageal reflux disease [Unknown]
  - Musculoskeletal chest pain [Unknown]
  - Abdominal distension [Not Recovered/Not Resolved]
  - Erythema [Unknown]
  - Abdominal pain lower [Unknown]
